FAERS Safety Report 5382097-8 (Version None)
Quarter: 2007Q3

REPORT INFORMATION
  Report Type: 
  Country: None (occurrence: None)
  Receive Date: 20070709
  Receipt Date: 20070702
  Transmission Date: 20080115
  Serious: Yes (Other)
  Sender: FDA-Public Use
  Company Number: JP-ASTRAZENECA-2007AP04018

PATIENT
  Weight: 60 kg

DRUGS (1)
  1. MEROPENEM [Suspect]
     Route: 042

REACTIONS (1)
  - ARTHRITIS [None]
